FAERS Safety Report 5973028-8 (Version None)
Quarter: 2008Q4

REPORT INFORMATION
  Report Type: 
  Country: None (occurrence: None)
  Receive Date: 20081201
  Receipt Date: 20081127
  Transmission Date: 20090506
  Serious: Yes (Death, Other)
  Sender: FDA-Public Use
  Company Number: JP-ASTRAZENECA-2008AP06515

PATIENT
  Age: 16150 Day
  Sex: Female
  Weight: 40 kg

DRUGS (18)
  1. DIPRIVAN [Suspect]
     Indication: INDUCTION AND MAINTENANCE OF ANAESTHESIA
     Dosage: 300 MG DURING ANAESTHESIA. 2590 MG FOR SEDATION.
     Route: 042
     Dates: start: 20080814, end: 20080815
  2. REMIFENTANIL HYDROCHLORIDE [Concomitant]
     Indication: MAINTENANCE OF ANAESTHESIA
     Route: 042
     Dates: start: 20080814, end: 20080814
  3. INOVAN [Concomitant]
     Indication: HYPOTENSION
     Route: 042
     Dates: start: 20080814, end: 20080814
  4. MUSCULAX [Concomitant]
     Indication: HYPOTONIA
     Route: 042
     Dates: start: 20080814, end: 20080814
  5. HEPARIN SODIUM [Concomitant]
     Route: 042
     Dates: start: 20080814, end: 20080814
  6. ALBUMIN (HUMAN) [Concomitant]
     Indication: VOLUME BLOOD DECREASED
     Route: 041
     Dates: start: 20080814, end: 20080815
  7. NOR-ADRENALIN [Concomitant]
     Indication: HYPOTENSION
     Route: 042
     Dates: start: 20080814, end: 20080814
  8. NOR-ADRENALIN [Concomitant]
     Route: 041
     Dates: start: 20080814, end: 20080815
  9. PERDIPINE [Concomitant]
     Indication: HYPERTENSION
     Route: 041
     Dates: start: 20080814, end: 20080815
  10. DOBUTREX [Concomitant]
     Indication: HYPOTENSION
     Route: 042
     Dates: start: 20080814, end: 20080814
  11. DOBUTREX [Concomitant]
     Route: 041
     Dates: start: 20080814, end: 20080815
  12. CORETEC [Concomitant]
     Indication: VASODILATATION
     Route: 041
     Dates: start: 20080814, end: 20080815
  13. ALPROSTADIL [Concomitant]
     Indication: MAINTENANCE OF ANAESTHESIA
     Route: 042
     Dates: start: 20080814, end: 20080814
  14. ALPROSTADIL [Concomitant]
     Indication: VASODILATATION
     Route: 042
     Dates: start: 20080814, end: 20080814
  15. ALPROSTADIL [Concomitant]
     Route: 041
     Dates: start: 20080814, end: 20080815
  16. ALPROSTADIL [Concomitant]
     Route: 041
     Dates: start: 20080814, end: 20080815
  17. PROTAMINE SULFATE [Concomitant]
     Indication: HEPARIN NEUTRALISATION THERAPY
     Route: 042
     Dates: start: 20080814, end: 20080814
  18. PROTAMINE SULFATE [Concomitant]
     Route: 041
     Dates: start: 20080814, end: 20080815

REACTIONS (2)
  - ACIDOSIS [None]
  - RHABDOMYOLYSIS [None]
